FAERS Safety Report 20322816 (Version 3)
Quarter: 2022Q1

REPORT INFORMATION
  Report Type: Report from Study
  Country: US (occurrence: US)
  Receive Date: 20220111
  Receipt Date: 20220224
  Transmission Date: 20220423
  Serious: Yes (Other)
  Sender: FDA-Public Use
  Company Number: US-JNJFOC-20220106795

PATIENT
  Age: 58 Year
  Sex: Female
  Weight: 51.756 kg

DRUGS (2)
  1. SPRAVATO [Suspect]
     Active Substance: ESKETAMINE
     Indication: Product used for unknown indication
     Dates: start: 2019
  2. SPRAVATO [Suspect]
     Active Substance: ESKETAMINE

REACTIONS (9)
  - Hallucination, visual [Unknown]
  - Drug dependence [Unknown]
  - Withdrawal syndrome [Unknown]
  - Insomnia [Unknown]
  - Blood pressure increased [Recovered/Resolved]
  - Irritability [Unknown]
  - Feeling abnormal [Unknown]
  - Depression [Unknown]
  - Therapeutic product effect decreased [Unknown]
